FAERS Safety Report 12885930 (Version 2)
Quarter: 2016Q4

REPORT INFORMATION
  Report Type: Report from Study
  Country: US (occurrence: US)
  Receive Date: 20161026
  Receipt Date: 20161114
  Transmission Date: 20170207
  Serious: Yes (Death, Life-Threatening, Other)
  Sender: FDA-Public Use
  Company Number: US-ALEXION PHARMACEUTICALS INC-A201608036

PATIENT
  Age: 0 Year
  Sex: Male

DRUGS (1)
  1. SOLIRIS [Suspect]
     Active Substance: ECULIZUMAB
     Indication: PRODUCT USED FOR UNKNOWN INDICATION
     Dosage: UNK
     Route: 064

REACTIONS (8)
  - Brain death [Fatal]
  - Apnoea [Unknown]
  - Premature baby [Unknown]
  - Cerebral haemorrhage [Unknown]
  - Foetal exposure during pregnancy [Recovered/Resolved]
  - Nervous system disorder [Unknown]
  - Hypokinesia [Unknown]
  - Foetal heart rate abnormal [Unknown]

NARRATIVE: CASE EVENT DATE: 201610
